FAERS Safety Report 11139475 (Version 1)
Quarter: 2015Q2

REPORT INFORMATION
  Report Type: Spontaneous
  Country: US (occurrence: None)
  Receive Date: 20150522
  Receipt Date: 20150522
  Transmission Date: 20150821
  Serious: Yes (Death, Hospitalization)
  Sender: FDA-Public Use
  Company Number: US-H14001-15-00750

PATIENT
  Age: 60 Year
  Sex: Male

DRUGS (4)
  1. VERAPAMIL (VERAPAMIL) (VERAPAMIL) [Concomitant]
     Active Substance: VERAPAMIL HYDROCHLORIDE
  2. METOPROLOL (METOPROLOL) (METOPROLOL) [Concomitant]
     Active Substance: METOPROLOL
  3. BLOOD TRANSFUSIONS (BLOOD TRANSFUSION, AUXILIARY PRODUCTS) [Concomitant]
  4. PREDNISONE (PREDNISONE) (UNKNOWN) (PREDNISONE) [Suspect]
     Active Substance: PREDNISONE
     Indication: PALLIATIVE CARE
     Dates: end: 20121203

REACTIONS (13)
  - Asthenia [None]
  - Anxiety [None]
  - Muscle spasms [None]
  - Hyperventilation [None]
  - Confusional state [None]
  - Pallor [None]
  - Drug dependence [None]
  - Hypotension [None]
  - Pain [None]
  - Dyspnoea [None]
  - Pyrexia [None]
  - Cushingoid [None]
  - Secondary adrenocortical insufficiency [None]
